FAERS Safety Report 9686379 (Version 1)
Quarter: 2013Q4

REPORT INFORMATION
  Report Type: Spontaneous
  Country: GB (occurrence: None)
  Receive Date: 20131108
  Receipt Date: 20131108
  Transmission Date: 20140711
  Serious: Yes (Other)
  Sender: FDA-Public Use
  Company Number: AUR-APL-2013-04606

PATIENT
  Age: 57 Year
  Sex: Male

DRUGS (9)
  1. AMLODIPINE [Suspect]
     Indication: HYPERTENSION
     Route: 048
     Dates: start: 201211
  2. GILENYA [Suspect]
     Route: 048
     Dates: start: 201112, end: 201302
  3. BACLOFEN (BACLOFEN) [Concomitant]
  4. CITALOPRAM (CITALOPRAM) [Concomitant]
  5. DOMPERIDONE (DOMPERIDONE) [Concomitant]
  6. LANSOPRAZOLE (LANSOPRAZOLE) [Concomitant]
  7. LORATIDINE [Concomitant]
  8. SIMVASTATIN (SIMVASTATIN) [Concomitant]
  9. TADALAFIL (TADALAFIL) [Concomitant]

REACTIONS (1)
  - Gynaecomastia [None]
